FAERS Safety Report 6787358-3 (Version None)
Quarter: 2010Q2

REPORT INFORMATION
  Report Type: 
  Country: None (occurrence: None)
  Receive Date: 20100623
  Receipt Date: 20040818
  Transmission Date: 20101027
  Serious: No
  Sender: FDA-Public Use
  Company Number: US-PFIZER INC-2004057614

PATIENT
  Age: 41 Year
  Sex: Male
  Weight: 87.09 kg

DRUGS (2)
  1. GEODON [Suspect]
     Indication: DEPRESSION
     Route: 048
     Dates: start: 20040301, end: 20040801
  2. PAXIL [Concomitant]
     Dates: start: 20040101

REACTIONS (15)
  - BUNDLE BRANCH BLOCK RIGHT [None]
  - CHEST PAIN [None]
  - DIVERTICULITIS [None]
  - HYPERHIDROSIS [None]
  - HYPOAESTHESIA [None]
  - INSOMNIA [None]
  - IRRITABLE BOWEL SYNDROME [None]
  - KELOID SCAR [None]
  - NERVOUSNESS [None]
  - PAIN [None]
  - PAIN IN EXTREMITY [None]
  - PARAESTHESIA [None]
  - SENSORY LOSS [None]
  - SWELLING [None]
  - UNEVALUABLE EVENT [None]
